FAERS Safety Report 22394186 (Version 1)
Quarter: 2023Q2

REPORT INFORMATION
  Report Type: Spontaneous
  Country: US (occurrence: None)
  Receive Date: 20230530
  Receipt Date: 20230530
  Transmission Date: 20230722
  Serious: No
  Sender: FDA-Public Use
  Company Number: None

PATIENT
  Age: 31 Year

DRUGS (1)
  1. TWIRLA [Suspect]
     Active Substance: ETHINYL ESTRADIOL\LEVONORGESTREL

REACTIONS (1)
  - Application site haemorrhage [None]

NARRATIVE: CASE EVENT DATE: 20230530
